FAERS Safety Report 7682605-8 (Version None)
Quarter: 2011Q3

REPORT INFORMATION
  Report Type: 
  Country: None (occurrence: None)
  Receive Date: 20110815
  Receipt Date: 20110803
  Transmission Date: 20111222
  Serious: Yes (Hospitalization)
  Sender: FDA-Public Use
  Company Number: JP-JNJFOC-20110804545

PATIENT
  Sex: Female

DRUGS (4)
  1. NEORAL [Suspect]
     Indication: PSORIASIS
     Route: 048
     Dates: start: 20110401, end: 20110506
  2. ADALAT [Suspect]
     Indication: HYPERTENSION
     Route: 048
     Dates: start: 20110511
  3. CANDESARTAN CILEXETIL [Concomitant]
     Indication: HYPERTENSION
     Route: 048
     Dates: start: 20110220
  4. STELARA [Suspect]
     Indication: PSORIASIS
     Route: 058
     Dates: start: 20110511

REACTIONS (3)
  - PALPITATIONS [None]
  - HYPERTENSION [None]
  - DIZZINESS [None]
